FAERS Safety Report 5889638-2 (Version None)
Quarter: 2008Q3

REPORT INFORMATION
  Report Type: 
  Country: None (occurrence: None)
  Receive Date: 20080919
  Receipt Date: 20080912
  Transmission Date: 20090109
  Serious: Yes (Other)
  Sender: FDA-Public Use
  Company Number: B0537763A

PATIENT
  Age: 46 Year
  Sex: Male

DRUGS (1)
  1. OMACOR [Suspect]
     Route: 048
     Dates: start: 20080730, end: 20080814

REACTIONS (3)
  - BLOOD PRESSURE INCREASED [None]
  - HYPERAESTHESIA [None]
  - PARAESTHESIA [None]
